FAERS Safety Report 8540243-9 (Version None)
Quarter: 2012Q3

REPORT INFORMATION
  Report Type: 
  Country: None (occurrence: None)
  Receive Date: 20120726
  Receipt Date: 20120719
  Transmission Date: 20120928
  Serious: Yes (Death)
  Sender: FDA-Public Use
  Company Number: CN-BAXTER-2012BAX012269

PATIENT
  Sex: Female

DRUGS (4)
  1. SODIUM CHLORIDE INJ [Suspect]
     Indication: MEDICATION DILUTION
     Route: 041
     Dates: start: 20100130, end: 20100130
  2. FRUCTOSE [Suspect]
  3. POTASSIUM CHLORIDE [Suspect]
  4. VITAMIN B6 [Suspect]

REACTIONS (1)
  - DEATH [None]
